FAERS Safety Report 7757897-7 (Version None)
Quarter: 2011Q3

REPORT INFORMATION
  Report Type: 
  Country: None (occurrence: None)
  Receive Date: 20110918
  Receipt Date: 20110523
  Transmission Date: 20111222
  Serious: Yes (Death)
  Sender: FDA-Public Use
  Company Number: PHHY2011US41851

PATIENT

DRUGS (2)
  1. GILENYA [Suspect]
     Indication: MULTIPLE SCLEROSIS
     Dosage: 0.5 MG, QD
     Route: 064
     Dates: start: 20110316, end: 20110421
  2. GILENYA [Suspect]
     Dosage: 0.5 MG, QD
     Route: 064

REACTIONS (2)
  - FOETAL HEART RATE ABNORMAL [None]
  - MATERNAL EXPOSURE DURING PREGNANCY [None]
